FAERS Safety Report 7888728-2 (Version None)
Quarter: 2011Q4

REPORT INFORMATION
  Report Type: 
  Country: None (occurrence: None)
  Receive Date: 20111101
  Receipt Date: 20111020
  Transmission Date: 20120403
  Serious: Yes (Hospitalization, Other)
  Sender: FDA-Public Use
  Company Number: 2011SP049442

PATIENT
  Age: 41 Year
  Sex: Male

DRUGS (3)
  1. TEMODAL [Suspect]
     Indication: METASTATIC MALIGNANT MELANOMA
     Dosage: 150 MG/M2; QD; PO
     Route: 048
     Dates: start: 20110414, end: 20110814
  2. NEXAVAR [Suspect]
     Indication: METASTATIC MALIGNANT MELANOMA
     Dosage: 400 MG; BID; PO
     Route: 048
     Dates: start: 20110414, end: 20110814
  3. IRBESARTAN [Concomitant]

REACTIONS (6)
  - CONDITION AGGRAVATED [None]
  - BLOOD PRESSURE SYSTOLIC INCREASED [None]
  - HEADACHE [None]
  - VISUAL ACUITY REDUCED [None]
  - HYPERTENSION [None]
  - ISCHAEMIC STROKE [None]
